FAERS Safety Report 21496955 (Version 1)
Quarter: 2022Q4

REPORT INFORMATION
  Report Type: Spontaneous
  Country: BR (occurrence: BR)
  Receive Date: 20221023
  Receipt Date: 20221023
  Transmission Date: 20230112
  Serious: Yes (Hospitalization)
  Sender: FDA-Public Use
  Company Number: BR-JNJFOC-20221025915

PATIENT
  Age: 62 Year
  Sex: Female
  Weight: 110 kg

DRUGS (5)
  1. RISPERDAL [Suspect]
     Active Substance: RISPERIDONE
     Indication: Schizophrenia
     Route: 065
  2. HALDOL [Suspect]
     Active Substance: HALOPERIDOL
     Indication: Schizophrenia
     Route: 065
  3. INVEGA [Suspect]
     Active Substance: PALIPERIDONE
     Indication: Schizophrenia
     Route: 065
  4. CLOZAPINE [Suspect]
     Active Substance: CLOZAPINE
     Indication: Schizophrenia
     Route: 065
  5. OLANZAPINE [Suspect]
     Active Substance: OLANZAPINE
     Route: 065

REACTIONS (4)
  - Bipolar I disorder [Not Recovered/Not Resolved]
  - Schizophrenia [Not Recovered/Not Resolved]
  - Therapeutic product ineffective [Unknown]
  - Treatment noncompliance [Unknown]

NARRATIVE: CASE EVENT DATE: 20220411
